FAERS Safety Report 6029157-6 (Version None)
Quarter: 2009Q1

REPORT INFORMATION
  Report Type: 
  Country: None (occurrence: None)
  Receive Date: 20090106
  Receipt Date: 20081003
  Transmission Date: 20090719
  Serious: No
  Sender: FDA-Public Use
  Company Number: US-TYCO HEALTHCARE/MALLINCKRODT-T200801612

PATIENT

DRUGS (1)
  1. OPTIMARK [Suspect]
     Indication: NUCLEAR MAGNETIC RESONANCE IMAGING BRAIN
     Dosage: 16 ML, SINGLE
     Route: 042
     Dates: start: 20080930, end: 20080930

REACTIONS (6)
  - BODY TEMPERATURE INCREASED [None]
  - DISORIENTATION [None]
  - FEELING COLD [None]
  - NAUSEA [None]
  - SYNCOPE [None]
  - TREMOR [None]
